FAERS Safety Report 6945437-1 (Version None)
Quarter: 2010Q3

REPORT INFORMATION
  Report Type: 
  Country: None (occurrence: None)
  Receive Date: 20100827
  Receipt Date: 20100816
  Transmission Date: 20110219
  Serious: Yes (Other)
  Sender: FDA-Public Use
  Company Number: KR-ROCHE-721311

PATIENT

DRUGS (7)
  1. MYCOPHENOLATE MOFETIL [Suspect]
     Dosage: 1.5 G/D IN 12 HOUR INTERVALS
     Route: 048
  2. BASILIXIMAB [Concomitant]
     Indication: IMMUNOSUPPRESSION
     Dosage: INDUCTION THERAPY
     Route: 042
  3. TACROLIMUS [Concomitant]
     Indication: IMMUNOSUPPRESSION
  4. CYCLOSPORINE [Concomitant]
     Indication: IMMUNOSUPPRESSION
  5. METHYLPREDNISOLONE [Concomitant]
     Indication: IMMUNOSUPPRESSION
     Route: 042
  6. METHYLPREDNISOLONE [Concomitant]
     Dosage: 4 DAYS POSTOPERATIVELY
     Route: 042
  7. METHYLPREDNISOLONE [Concomitant]
     Dosage: GIVEN FOR 1 MONTH
     Route: 048

REACTIONS (9)
  - CYTOMEGALOVIRUS INFECTION [None]
  - DIARRHOEA [None]
  - DYSPEPSIA [None]
  - GASTROINTESTINAL DISORDER [None]
  - HUMAN POLYOMAVIRUS INFECTION [None]
  - LEUKOPENIA [None]
  - NAUSEA [None]
  - PARVOVIRUS INFECTION [None]
  - TRANSPLANT REJECTION [None]
